FAERS Safety Report 15249050 (Version 1)
Quarter: 2018Q3

REPORT INFORMATION
  Report Type: Spontaneous
  Country: US (occurrence: US)
  Receive Date: 20180807
  Receipt Date: 20180807
  Transmission Date: 20181010
  Serious: No
  Sender: FDA-Public Use
  Company Number: US-MYLANLABS-2018M1052839

PATIENT
  Sex: Female

DRUGS (1)
  1. GLATIRAMER MYLAN [Suspect]
     Active Substance: GLATIRAMER
     Indication: PRODUCT USED FOR UNKNOWN INDICATION
     Dosage: UNK
     Dates: start: 20180709

REACTIONS (2)
  - Injection site warmth [Unknown]
  - Injection site swelling [Unknown]
